FAERS Safety Report 11257953 (Version 2)
Quarter: 2015Q3

REPORT INFORMATION
  Report Type: Spontaneous
  Country: US (occurrence: None)
  Receive Date: 20150708
  Receipt Date: 20150824
  Transmission Date: 20151125
  Serious: No
  Sender: FDA-Public Use
  Company Number: 1210513-2015-00128

PATIENT
  Sex: Female

DRUGS (1)
  1. WALMART EQUATE ORASOL (SHEFFIELD PHARMACEUTICALS) [Suspect]
     Active Substance: BENZOCAINE
     Indication: ANALGESIC THERAPY
     Route: 048
     Dates: start: 20150428

REACTIONS (2)
  - Lip swelling [None]
  - Nasal congestion [None]

NARRATIVE: CASE EVENT DATE: 20150428
